FAERS Safety Report 7748901-0 (Version None)
Quarter: 2011Q3

REPORT INFORMATION
  Report Type: 
  Country: None (occurrence: None)
  Receive Date: 20110913
  Receipt Date: 20110913
  Transmission Date: 20111222
  Serious: Yes (Hospitalization)
  Sender: FDA-Public Use
  Company Number: None

PATIENT
  Age: 63 Year
  Sex: Male

DRUGS (2)
  1. WARFARIN SODIUM [Suspect]
     Indication: PULMONARY EMBOLISM
     Dosage: MG PO
     Route: 048
     Dates: start: 20110701
  2. HEPARIN SODIUM 1,000 UNITS IN DEXTROSE 5% [Suspect]
     Indication: PULMONARY EMBOLISM
     Dates: start: 20110814, end: 20110819

REACTIONS (3)
  - INTERNATIONAL NORMALISED RATIO INCREASED [None]
  - ANAEMIA [None]
  - RETROPERITONEAL HAEMATOMA [None]
